FAERS Safety Report 6182815-5 (Version None)
Quarter: 2009Q2

REPORT INFORMATION
  Report Type: 
  Country: None (occurrence: None)
  Receive Date: 20090507
  Receipt Date: 20090427
  Transmission Date: 20091009
  Serious: Yes (Other)
  Sender: FDA-Public Use
  Company Number: US-PFIZER INC-2009204938

PATIENT
  Sex: Male
  Weight: 83.9 kg

DRUGS (10)
  1. VIAGRA [Suspect]
     Indication: ERECTILE DYSFUNCTION
     Dosage: 50 MG, UNK
  2. FUROSEMIDE [Concomitant]
     Dosage: UNK
  3. DIGOXIN [Concomitant]
     Dosage: UNK
  4. SPIRONOLACTONE [Concomitant]
     Dosage: UNK
  5. TYLENOL [Concomitant]
     Dosage: UNK
  6. COREG [Concomitant]
     Dosage: UNK
  7. LIPITOR [Concomitant]
     Dosage: UNK
  8. BENAZEPRIL [Concomitant]
     Dosage: UNK
  9. WARFARIN [Concomitant]
     Dosage: UNK
  10. ATIVAN [Concomitant]
     Dosage: UNK

REACTIONS (2)
  - DEAFNESS [None]
  - MACULAR DEGENERATION [None]
